FAERS Safety Report 11175270 (Version 1)
Quarter: 2015Q2

REPORT INFORMATION
  Report Type: Spontaneous
  Country: US (occurrence: None)
  Receive Date: 20150608
  Receipt Date: 20150608
  Transmission Date: 20150821
  Serious: Yes (Other)
  Sender: FDA-Public Use
  Company Number: None

PATIENT
  Age: 75 Year
  Sex: Female
  Weight: 51.71 kg

DRUGS (9)
  1. RESTYLANE [Suspect]
     Active Substance: HYALURONIC ACID
     Indication: SKIN DISORDER
     Dosage: 1CC AND .5CC, BY INJECTION
     Route: 058
     Dates: start: 20140730, end: 20150212
  2. PROBIOTIC [Concomitant]
     Active Substance: PROBIOTICS NOS
  3. SYNTHROID [Concomitant]
     Active Substance: LEVOTHYROXINE SODIUM
  4. VITAMIN D [Concomitant]
     Active Substance: CHOLECALCIFEROL
  5. CALCIUM [Concomitant]
     Active Substance: CALCIUM
  6. VIT B COMPLEX [Concomitant]
  7. MINOCYCLINE [Concomitant]
     Active Substance: MINOCYCLINE\MINOCYCLINE HYDROCHLORIDE
  8. MULTIVITAMIN [Concomitant]
     Active Substance: VITAMINS
  9. MAGNESIUM BORON [Concomitant]

REACTIONS (4)
  - Deformity [None]
  - Swelling [None]
  - Contusion [None]
  - Infection [None]

NARRATIVE: CASE EVENT DATE: 20140730
